FAERS Safety Report 7447803-7 (Version None)
Quarter: 2011Q2

REPORT INFORMATION
  Report Type: 
  Country: None (occurrence: None)
  Receive Date: 20110429
  Receipt Date: 20110428
  Transmission Date: 20111010
  Serious: Yes (Death)
  Sender: FDA-Public Use
  Company Number: KR-EISAI INC-E2020-08989-SPO-KR

PATIENT
  Age: 81 Year
  Sex: Male
  Weight: 55 kg

DRUGS (3)
  1. AMIKACIN SULFATE [Concomitant]
     Indication: INFLAMMATION
     Dosage: 2 AMP
     Route: 042
     Dates: start: 20101215, end: 20101225
  2. ARICEPT [Suspect]
     Route: 048
     Dates: start: 20101221
  3. CEFTRIAXONE [Concomitant]
     Indication: INFLAMMATION
     Dosage: 4000 MG
     Route: 042
     Dates: start: 20101215, end: 20101225

REACTIONS (2)
  - CONFUSIONAL STATE [None]
  - CARDIAC ARREST [None]
